FAERS Safety Report 4643470-6 (Version None)
Quarter: 2005Q2

REPORT INFORMATION
  Report Type: 
  Country: None (occurrence: None)
  Receive Date: 20050323
  Receipt Date: 20040921
  Transmission Date: 20051028
  Serious: Yes (Other)
  Sender: FDA-Public Use
  Company Number: K200401437

PATIENT
  Age: 29 Year
  Sex: Female
  Weight: 146.5 kg

DRUGS (2)
  1. ALTACE [Suspect]
     Indication: HYPERTENSION
     Dosage: 10 MG, SINGLE, ORAL
     Route: 048
     Dates: start: 20040919, end: 20040919
  2. ASPIRIN [Concomitant]

REACTIONS (2)
  - ANGIONEUROTIC OEDEMA [None]
  - SWELLING FACE [None]
